FAERS Safety Report 9369623 (Version 1)
Quarter: 2013Q2

REPORT INFORMATION
  Report Type: Spontaneous
  Country: SE (occurrence: SE)
  Receive Date: 20130626
  Receipt Date: 20130626
  Transmission Date: 20140414
  Serious: Yes (Other)
  Sender: FDA-Public Use
  Company Number: SE-MPIJNJ-2013-02646

PATIENT
  Sex: 0

DRUGS (5)
  1. VELCADE [Suspect]
     Indication: PLASMA CELL MYELOMA
     Dosage: UNK
     Route: 042
     Dates: start: 20120117, end: 20120316
  2. ACICLOVIR [Concomitant]
  3. SENDOXAN [Concomitant]
  4. BETAPRED [Concomitant]
  5. EUSAPRIM                           /00086101/ [Concomitant]

REACTIONS (2)
  - Pain [Recovered/Resolved with Sequelae]
  - Neuropathy peripheral [Recovered/Resolved with Sequelae]
